FAERS Safety Report 19133219 (Version 1)
Quarter: 2021Q2

REPORT INFORMATION
  Report Type: Spontaneous
  Country: CA (occurrence: CA)
  Receive Date: 20210413
  Receipt Date: 20210413
  Transmission Date: 20210717
  Serious: Yes (Other)
  Sender: FDA-Public Use
  Company Number: CA-BRISTOL-MYERS SQUIBB COMPANY-BMS-2021-033841

PATIENT
  Age: 68 Year
  Sex: Male
  Weight: 74.84 kg

DRUGS (3)
  1. ELIQUIS [Suspect]
     Active Substance: APIXABAN
     Indication: CEREBROVASCULAR ACCIDENT PROPHYLAXIS
  2. ELIQUIS [Suspect]
     Active Substance: APIXABAN
     Indication: THROMBOTIC CEREBRAL INFARCTION
  3. ELIQUIS [Suspect]
     Active Substance: APIXABAN
     Indication: VASCULAR DEMENTIA
     Dosage: 5 MILLIGRAM, BID
     Route: 048

REACTIONS (1)
  - Coagulopathy [Recovered/Resolved]
